FAERS Safety Report 4515977-3 (Version None)
Quarter: 2004Q4

REPORT INFORMATION
  Report Type: 
  Country: None (occurrence: None)
  Receive Date: 20041201
  Receipt Date: 20041122
  Transmission Date: 20050328
  Serious: Yes (Other)
  Sender: FDA-Public Use
  Company Number: E-04-034

PATIENT
  Age: 23 Year
  Sex: Female

DRUGS (10)
  1. HUMIBID  LA TABLETS, VINTAGE [Suspect]
     Indication: RESPIRATORY TRACT INFECTION
     Dosage: T -TT  P.O. B.I.D.
     Route: 048
     Dates: start: 20041119
  2. LEVAQUIN [Concomitant]
  3. ATENOLOL [Concomitant]
  4. LEXAPRO [Concomitant]
  5. GRAITRIL [Concomitant]
  6. NORTRYPTILINE [Concomitant]
  7. TEMASEDAM [Concomitant]
  8. ZYRTEC [Concomitant]
  9. DEPO-PROVERA [Concomitant]
  10. OXYCODONE HCL [Concomitant]

REACTIONS (3)
  - DEPRESSED LEVEL OF CONSCIOUSNESS [None]
  - DYSTONIA [None]
  - POSTURING [None]
